FAERS Safety Report 16031093 (Version 1)
Quarter: 2019Q1

REPORT INFORMATION
  Report Type: Report from Study
  Country: US (occurrence: US)
  Receive Date: 20190304
  Receipt Date: 20190304
  Transmission Date: 20190418
  Serious: Yes (Other)
  Sender: FDA-Public Use
  Company Number: US-BAYER-2019-038563

PATIENT
  Age: 63 Year
  Sex: Male

DRUGS (5)
  1. NEXAVAR [Suspect]
     Active Substance: SORAFENIB
     Dosage: 200 MG, QD (FOR 21 DAY)
     Route: 048
     Dates: start: 20190122
  2. COLACE [Concomitant]
     Active Substance: DOCUSATE SODIUM
  3. AMLODIPINE BESYLATE. [Concomitant]
     Active Substance: AMLODIPINE BESYLATE
  4. FLUARIX QUADRIVALENT [Concomitant]
     Dosage: UNK
     Dates: start: 2018
  5. ALOPURINOL [Concomitant]
     Active Substance: ALLOPURINOL

REACTIONS (6)
  - Nausea [Not Recovered/Not Resolved]
  - Off label use [None]
  - Blood disorder [Not Recovered/Not Resolved]
  - Dry skin [Not Recovered/Not Resolved]
  - Impaired healing [Not Recovered/Not Resolved]
  - Somnolence [Not Recovered/Not Resolved]

NARRATIVE: CASE EVENT DATE: 20190122
